FAERS Safety Report 10065482 (Version 1)
Quarter: 2014Q2

REPORT INFORMATION
  Report Type: Other
  Country: JP (occurrence: JP)
  Receive Date: 20140408
  Receipt Date: 20140408
  Transmission Date: 20141212
  Serious: Yes (Death)
  Sender: FDA-Public Use
  Company Number: PHHY2014JP041210

PATIENT
  Sex: 0

DRUGS (1)
  1. VOLTAREN [Suspect]
     Dosage: UNK UKN, UNK
     Route: 048

REACTIONS (1)
  - Cardiac disorder [Fatal]
